FAERS Safety Report 22279215 (Version 1)
Quarter: 2023Q2

REPORT INFORMATION
  Report Type: Spontaneous
  Country: US (occurrence: None)
  Receive Date: 20230502
  Receipt Date: 20230502
  Transmission Date: 20230722
  Serious: Yes (Death)
  Sender: FDA-Public Use
  Company Number: None

PATIENT
  Age: 58 Year
  Sex: Male

DRUGS (11)
  1. OPSUMIT [Suspect]
     Active Substance: MACITENTAN
     Indication: Pulmonary arterial hypertension
     Dates: start: 20190327, end: 20230409
  2. SILDENAFIL [Concomitant]
     Active Substance: SILDENAFIL
  3. SELEXIPAG [Concomitant]
     Active Substance: SELEXIPAG
  4. TOLVAPTAN [Concomitant]
     Active Substance: TOLVAPTAN
  5. AMIODARONE [Concomitant]
     Active Substance: AMIODARONE
  6. BUMETANIDE [Concomitant]
     Active Substance: BUMETANIDE
  7. VITAMINS [Concomitant]
     Active Substance: VITAMINS
  8. CADEXOMER TOPICAL GEL [Concomitant]
  9. POTASSIUM [Concomitant]
     Active Substance: POTASSIUM
  10. OMEPRAZOLE [Concomitant]
     Active Substance: OMEPRAZOLE
  11. OXYCODONE [Concomitant]
     Active Substance: OXYCODONE

REACTIONS (1)
  - Right ventricular failure [None]

NARRATIVE: CASE EVENT DATE: 20230310
